FAERS Safety Report 14205438 (Version 2)
Quarter: 2018Q1

REPORT INFORMATION
  Report Type: Spontaneous
  Country: US (occurrence: US)
  Receive Date: 20171120
  Receipt Date: 20180117
  Transmission Date: 20180508
  Serious: No
  Sender: FDA-Public Use
  Company Number: US-MYLANLABS-2017M1070806

PATIENT
  Sex: Female
  Weight: 64 kg

DRUGS (1)
  1. FENTANYL TRANSDERMAL SYSTEM [Suspect]
     Active Substance: FENTANYL
     Indication: PAIN
     Dosage: 75 ?G, QH
     Route: 062

REACTIONS (4)
  - Product adhesion issue [Not Recovered/Not Resolved]
  - Drug effect decreased [Recovering/Resolving]
  - Skin discolouration [Not Recovered/Not Resolved]
  - Drug ineffective [Recovering/Resolving]
